FAERS Safety Report 9033995 (Version 1)
Quarter: 2013Q1

REPORT INFORMATION
  Report Type: Spontaneous
  Country: US (occurrence: US)
  Receive Date: 20130128
  Receipt Date: 20130128
  Transmission Date: 20140127
  Serious: Yes (Hospitalization)
  Sender: FDA-Public Use
  Company Number: US-AMGEN-USASP2012064847

PATIENT
  Age: 48 Year
  Sex: Female

DRUGS (2)
  1. ENBREL [Suspect]
     Indication: RHEUMATOID ARTHRITIS
     Dosage: 50 MG, QWK
     Dates: start: 20000223, end: 2007
  2. METHOTREXATE [Concomitant]
     Dosage: 0.6 MG, QWK

REACTIONS (13)
  - Renal failure [Recovered/Resolved]
  - Arthropathy [Recovered/Resolved]
  - Sepsis [Recovered/Resolved]
  - Finger deformity [Not Recovered/Not Resolved]
  - Foot fracture [Recovered/Resolved]
  - Laboratory test abnormal [Not Recovered/Not Resolved]
  - Fall [Recovered/Resolved]
  - Excoriation [Recovered/Resolved]
  - Gout [Recovered/Resolved]
  - Joint destruction [Not Recovered/Not Resolved]
  - Joint swelling [Not Recovered/Not Resolved]
  - Gait disturbance [Not Recovered/Not Resolved]
  - Rheumatoid arthritis [Not Recovered/Not Resolved]
